FAERS Safety Report 22664550 (Version 3)
Quarter: 2023Q4

REPORT INFORMATION
  Report Type: Report from Study
  Country: US (occurrence: US)
  Receive Date: 20230703
  Receipt Date: 20231008
  Transmission Date: 20240109
  Serious: Yes (Hospitalization, Other)
  Sender: FDA-Public Use
  Company Number: US-ABBVIE-5311984

PATIENT
  Sex: Female

DRUGS (3)
  1. SKYRIZI [Suspect]
     Active Substance: RISANKIZUMAB-RZAA
     Indication: Psoriasis
     Route: 058
  2. SKYRIZI [Suspect]
     Active Substance: RISANKIZUMAB-RZAA
     Route: 058
     Dates: start: 20220201
  3. CALCIUM [Suspect]
     Active Substance: CALCIUM
     Indication: Product used for unknown indication
     Route: 065
     Dates: end: 202305

REACTIONS (10)
  - Renal cancer [Unknown]
  - Skin cancer [Unknown]
  - Single functional kidney [Unknown]
  - Limb discomfort [Unknown]
  - Nephrolithiasis [Unknown]
  - Gait inability [Unknown]
  - Hypocalcaemia [Recovered/Resolved]
  - Musculoskeletal discomfort [Unknown]
  - Breast cancer female [Unknown]
  - Brain neoplasm [Unknown]

NARRATIVE: CASE EVENT DATE: 20230101
